FAERS Safety Report 20502917 (Version 1)
Quarter: 2022Q1

REPORT INFORMATION
  Report Type: Spontaneous
  Country: US (occurrence: US)
  Receive Date: 20220222
  Receipt Date: 20220222
  Transmission Date: 20220423
  Serious: No
  Sender: FDA-Public Use
  Company Number: US-ALLERGAN-2126491US

PATIENT
  Age: 53 Year
  Sex: Male

DRUGS (1)
  1. OZURDEX [Suspect]
     Active Substance: DEXAMETHASONE
     Indication: Cystoid macular oedema
     Dosage: 0.7 MG, SINGLE
     Route: 031
     Dates: start: 20210715, end: 20210715

REACTIONS (3)
  - Off label use [Unknown]
  - Complication of device insertion [Unknown]
  - Needle issue [Unknown]

NARRATIVE: CASE EVENT DATE: 20210715
